FAERS Safety Report 9742634 (Version 2)
Quarter: 2013Q4

REPORT INFORMATION
  Report Type: Spontaneous
  Country: US (occurrence: US)
  Receive Date: 20131210
  Receipt Date: 20131210
  Transmission Date: 20140711
  Serious: Yes (Hospitalization)
  Sender: FDA-Public Use
  Company Number: US-GILEAD-2009-0024633

PATIENT
  Sex: Female

DRUGS (7)
  1. LETAIRIS [Suspect]
     Indication: PULMONARY ARTERIAL HYPERTENSION
     Route: 048
     Dates: start: 20080903
  2. COUMADIN [Concomitant]
  3. LISINOPRIL [Concomitant]
  4. TAZTIA XT [Concomitant]
  5. REVATIO [Concomitant]
  6. K-DUR [Concomitant]
  7. NEXIUM [Concomitant]

REACTIONS (1)
  - Dyspnoea [Unknown]
